FAERS Safety Report 24335798 (Version 1)
Quarter: 2024Q3

REPORT INFORMATION
  Report Type: Report from Study
  Country: CA (occurrence: CA)
  Receive Date: 20240919
  Receipt Date: 20240919
  Transmission Date: 20241017
  Serious: Yes (Other)
  Sender: Alvotech
  Company Number: CA-JAMP PHARMA CORPORATION-2024-JAM-CA-01083

PATIENT
  Age: 38 Year
  Sex: Female

DRUGS (3)
  1. SIMLANDI [Suspect]
     Active Substance: ADALIMUMAB-RYVK
     Indication: Crohn^s disease
     Dosage: 80 MILLIGRAM, WEEKLY
     Route: 058
     Dates: start: 202409
  2. SIMLANDI [Suspect]
     Active Substance: ADALIMUMAB-RYVK
     Indication: Crohn^s disease
     Dosage: 40 MILLIGRAM, WEEKLY
     Route: 058
     Dates: start: 202407
  3. SIMLANDI [Suspect]
     Active Substance: ADALIMUMAB-RYVK
     Indication: Crohn^s disease
     Route: 065
     Dates: start: 20240329

REACTIONS (8)
  - Colitis [Not Recovered/Not Resolved]
  - General symptom [Not Recovered/Not Resolved]
  - Drug level below therapeutic [Unknown]
  - Abdominal pain [Unknown]
  - Abdominal discomfort [Unknown]
  - Arthralgia [Unknown]
  - C-reactive protein increased [Unknown]
  - Off label use [Unknown]
